FAERS Safety Report 16951392 (Version 3)
Quarter: 2021Q2

REPORT INFORMATION
  Report Type: Spontaneous
  Country: IT (occurrence: IT)
  Receive Date: 20191023
  Receipt Date: 20210603
  Transmission Date: 20210716
  Serious: Yes (Other)
  Sender: FDA-Public Use
  Company Number: IT-PFIZER INC-2019319127

PATIENT
  Age: 38 Year
  Sex: Female

DRUGS (3)
  1. TACHIPIRINA [Concomitant]
     Active Substance: ACETAMINOPHEN
     Dosage: UNK
  2. BASSADO [Suspect]
     Active Substance: DOXYCYCLINE
     Indication: CHLAMYDIAL INFECTION
     Dosage: 100 MG, 2X/DAY
     Dates: start: 201604, end: 201606
  3. BASSADO [Suspect]
     Active Substance: DOXYCYCLINE
     Indication: SALPINGITIS

REACTIONS (7)
  - Uterine hypertonus [Not Recovered/Not Resolved]
  - Pelvic inflammatory disease [Unknown]
  - Vaginal infection [Not Recovered/Not Resolved]
  - Neuropathy peripheral [Not Recovered/Not Resolved]
  - Pelvic pain [Not Recovered/Not Resolved]
  - Urinary tract obstruction [Unknown]
  - Burning sensation [Not Recovered/Not Resolved]

NARRATIVE: CASE EVENT DATE: 201607
